FAERS Safety Report 9606626 (Version 1)
Quarter: 2013Q4

REPORT INFORMATION
  Report Type: Spontaneous
  Country: US (occurrence: US)
  Receive Date: 20131008
  Receipt Date: 20131008
  Transmission Date: 20140711
  Serious: No
  Sender: FDA-Public Use
  Company Number: US-AMGEN-USASP2013057239

PATIENT
  Age: 76 Year
  Sex: Female
  Weight: 109 kg

DRUGS (13)
  1. PROLIA [Suspect]
     Indication: OSTEOPOROSIS
     Dosage: UNK UNK, Q6MO
     Route: 058
     Dates: end: 20130415
  2. HYDROCHLOROTHIAZIDE [Concomitant]
     Dosage: 25 MG, QD
  3. LISINOPRIL [Concomitant]
     Dosage: 2.5 MG, QD
  4. VITAMIN A                          /00056001/ [Concomitant]
     Dosage: 1/2 QD
  5. ESTER C                            /00008001/ [Concomitant]
     Dosage: 500 MG, QD
  6. CO-Q10-CHLORELLA [Concomitant]
     Dosage: 100 MG, QD
  7. CINNAMON                           /01647501/ [Concomitant]
     Dosage: 1 QD
  8. CALCIUM CITRATE [Concomitant]
     Dosage: 50 MG, QD
  9. VITAMIN B12                        /00056201/ [Concomitant]
     Dosage: 1000 MUG, QD
  10. CHOLEST OFF NATURE MADE [Concomitant]
     Dosage: 2 , QD
  11. OMEGA 3                            /01333901/ [Concomitant]
     Dosage: 1 UNK, QD
  12. ZOCOR [Concomitant]
  13. MULTIVITAMIN                       /00097801/ [Concomitant]
     Dosage: 1/2

REACTIONS (8)
  - Myalgia [Recovering/Resolving]
  - Injection site erythema [Unknown]
  - Injection site pruritus [Unknown]
  - Scab [Unknown]
  - Dry skin [Unknown]
  - Pain [Unknown]
  - Gait disturbance [Unknown]
  - Pruritus [Unknown]
